FAERS Safety Report 5524984-3 (Version None)
Quarter: 2007Q4

REPORT INFORMATION
  Report Type: 
  Country: None (occurrence: None)
  Receive Date: 20071119
  Receipt Date: 20071112
  Transmission Date: 20080405
  Serious: Yes (Hospitalization)
  Sender: FDA-Public Use
  Company Number: 2007SP022792

PATIENT
  Age: 53 Year
  Sex: Male

DRUGS (2)
  1. OXYMETAZOLINE HCL [Suspect]
     Indication: DRUG USE FOR UNKNOWN INDICATION
     Dosage: BID
     Dates: start: 20070922, end: 20070923
  2. BISOPROLOL (CON.) [Concomitant]

REACTIONS (4)
  - CARDIAC ARREST [None]
  - SELF-MEDICATION [None]
  - VENTRICULAR FIBRILLATION [None]
  - VENTRICULAR TACHYCARDIA [None]
